FAERS Safety Report 23139743 (Version 1)
Quarter: 2023Q4

REPORT INFORMATION
  Report Type: Spontaneous
  Country: US (occurrence: US)
  Receive Date: 20231102
  Receipt Date: 20231102
  Transmission Date: 20240109
  Serious: Yes (Hospitalization)
  Sender: FDA-Public Use
  Company Number: US-SCA PHARMACEUTICALS-2023SCA00005

PATIENT
  Age: 22 Year
  Sex: Female
  Weight: 76.19 kg

DRUGS (2)
  1. FENTANYL\ROPIVACAINE [Suspect]
     Active Substance: FENTANYL\ROPIVACAINE
     Indication: Pregnancy
     Dosage: 12 ML/HR IV INFUSION EPIDURAL
     Route: 008
     Dates: start: 20230721, end: 20230722
  2. FENTANYL\ROPIVACAINE [Suspect]
     Active Substance: FENTANYL\ROPIVACAINE
     Indication: Delivery

REACTIONS (2)
  - Hypoaesthesia [Recovered/Resolved]
  - Movement disorder [Recovered/Resolved]

NARRATIVE: CASE EVENT DATE: 20230722
